FAERS Safety Report 8533206-0 (Version None)
Quarter: 2012Q3

REPORT INFORMATION
  Report Type: 
  Country: None (occurrence: None)
  Receive Date: 20120724
  Receipt Date: 20120717
  Transmission Date: 20120928
  Serious: Yes (Other)
  Sender: FDA-Public Use
  Company Number: BR-PFIZER INC-2012173176

PATIENT
  Age: 56 Year
  Sex: Female
  Weight: 104 kg

DRUGS (6)
  1. SIMVASTATIN [Concomitant]
     Indication: PROPHYLAXIS
     Dosage: 20 MG, UNK
  2. OMEPRAZOLE [Concomitant]
     Indication: GASTRIC DISORDER
  3. ALPRAZOLAM [Suspect]
     Indication: ANXIETY
     Dosage: 1 MG (ONE TABLET), 2X/DAY
     Route: 048
     Dates: start: 20040101
  4. CALCIUM [Concomitant]
     Indication: OSTEOPOROSIS PROPHYLAXIS
     Dosage: UNK
  5. LEXAPRO [Concomitant]
     Dosage: UNK
  6. OMEPRAZOLE [Concomitant]
     Indication: NAUSEA
     Dosage: UNK

REACTIONS (7)
  - HYPERTENSION [None]
  - DEVICE BREAKAGE [None]
  - EMOTIONAL DISORDER [None]
  - MENOPAUSE [None]
  - BODY HEIGHT DECREASED [None]
  - BREAST CANCER [None]
  - TYPE 2 DIABETES MELLITUS [None]
